FAERS Safety Report 10206160 (Version 1)
Quarter: 2014Q2

REPORT INFORMATION
  Report Type: Spontaneous
  Country: US (occurrence: None)
  Receive Date: 20140527
  Receipt Date: 20140527
  Transmission Date: 20141212
  Serious: Yes (Other)
  Sender: FDA-Public Use
  Company Number: KAD201405-000545

PATIENT
  Sex: Female

DRUGS (1)
  1. RIBASPHERE RIBAPAK [Suspect]
     Dosage: TABLET, 1000 MG DAILY (600 MG/400 MG), ORAL
     Route: 048

REACTIONS (2)
  - Rash generalised [None]
  - Obstructive airways disorder [None]
